FAERS Safety Report 5928671-9 (Version None)
Quarter: 2008Q4

REPORT INFORMATION
  Report Type: 
  Country: None (occurrence: None)
  Receive Date: 20081023
  Receipt Date: 20081021
  Transmission Date: 20090506
  Serious: Yes (Hospitalization, Other)
  Sender: FDA-Public Use
  Company Number: US-ROXANE LABORATORIES, INC.-2008-RO-00148RO

PATIENT
  Sex: Male

DRUGS (7)
  1. PREDNISONE TAB [Suspect]
     Indication: LIVER TRANSPLANT
     Dates: start: 20080720
  2. BELATACEPT [Suspect]
     Indication: LIVER TRANSPLANT
     Route: 042
     Dates: start: 20080715
  3. BASILIXIMAB [Suspect]
     Indication: LIVER TRANSPLANT
     Dates: start: 20080715
  4. CELLCEPT [Suspect]
     Indication: LIVER TRANSPLANT
     Dosage: 2000MG
     Route: 048
     Dates: start: 20080715, end: 20080719
  5. CELLCEPT [Suspect]
     Route: 048
  6. PLACEBO [Suspect]
     Indication: LIVER TRANSPLANT
     Route: 042
     Dates: start: 20080715
  7. VALCYTE [Concomitant]
     Dates: start: 20080718

REACTIONS (2)
  - CLOSTRIDIUM DIFFICILE COLITIS [None]
  - INGUINAL HERNIA [None]
